FAERS Safety Report 14409393 (Version 1)
Quarter: 2018Q1

REPORT INFORMATION
  Report Type: Spontaneous
  Country: JP (occurrence: JP)
  Receive Date: 20180119
  Receipt Date: 20180119
  Transmission Date: 20180509
  Serious: Yes (Other)
  Sender: FDA-Public Use
  Company Number: JP-ALKEM LABORATORIES LIMITED-JP-ALKEM-2018-00064

PATIENT
  Age: 73 Year
  Sex: Female

DRUGS (1)
  1. OLANZAPINE. [Suspect]
     Active Substance: OLANZAPINE
     Indication: SCHIZOPHRENIA
     Dosage: 10 MG, UNK
     Route: 065

REACTIONS (3)
  - Atrioventricular block first degree [Recovering/Resolving]
  - Hypothermia [Recovering/Resolving]
  - Electrocardiogram QT prolonged [Recovering/Resolving]
